FAERS Safety Report 16658371 (Version 1)
Quarter: 2019Q3

REPORT INFORMATION
  Report Type: Spontaneous
  Country: US (occurrence: US)
  Receive Date: 20190801
  Receipt Date: 20190801
  Transmission Date: 20191004
  Serious: Yes (Hospitalization)
  Sender: FDA-Public Use
  Company Number: None

PATIENT
  Age: 71 Year
  Sex: Male

DRUGS (2)
  1. GAMUNEX-C [Suspect]
     Active Substance: HUMAN IMMUNOGLOBULIN G
     Indication: PULMONARY MASS
     Dosage: ?          OTHER FREQUENCY:1,2 DAYS EVERY 14;OTHER ROUTE:INFUSION?
  2. CLOMIPHENE TAB 50MG [Concomitant]

REACTIONS (1)
  - Hospitalisation [None]
